FAERS Safety Report 9275786 (Version 1)
Quarter: 2013Q2

REPORT INFORMATION
  Report Type: Spontaneous
  Country: IT (occurrence: None)
  Receive Date: 20130430
  Receipt Date: 20130430
  Transmission Date: 20140414
  Serious: Yes (Other)
  Sender: FDA-Public Use
  Company Number: GER/ITL/13/0029239

PATIENT
  Age: 4 Year
  Sex: Female
  Weight: 17 kg

DRUGS (3)
  1. CITALOPRAM [Suspect]
     Indication: PRODUCT USED FOR UNKNOWN INDICATION
     Route: 048
     Dates: start: 20130204, end: 20130204
  2. ZIRTEC (CETIRIZINE HYDROCHLORIDE) [Concomitant]
  3. NUROFEN FEVER AND PAIN (IBUPROFEN) [Concomitant]

REACTIONS (6)
  - Psychomotor hyperactivity [None]
  - Heart rate increased [None]
  - Agitation [None]
  - Convulsion [None]
  - Nervousness [None]
  - Accidental exposure to product by child [None]
